FAERS Safety Report 8788170 (Version 1)
Quarter: 2012Q4

REPORT INFORMATION
  Report Type: 
  Country: JP (occurrence: JP)
  Receive Date: 20120914
  Receipt Date: 20120914
  Transmission Date: 20130627
  Serious: Yes (Other)
  Sender: FDA-Public Use
  Company Number: JP-ASTELLAS-2012JP008469

PATIENT
  Age: 80 Year
  Sex: Female

DRUGS (1)
  1. MIRABEGRON [Suspect]
     Dosage: 50 mg, UID/QD
     Route: 048

REACTIONS (1)
  - Glomerular filtration rate decreased [Unknown]
